FAERS Safety Report 15298586 (Version 1)
Quarter: 2018Q3

REPORT INFORMATION
  Report Type: Spontaneous
  Country: JP (occurrence: JP)
  Receive Date: 20180820
  Receipt Date: 20180820
  Transmission Date: 20181010
  Serious: Yes (Other)
  Sender: FDA-Public Use
  Company Number: JP-NAPPMUNDI-GBR-2017-0046625

PATIENT
  Sex: Male

DRUGS (1)
  1. OXIFAST [Suspect]
     Active Substance: OXYCODONE
     Indication: CANCER PAIN
     Dosage: 12.5 MG, DAILY
     Route: 041
     Dates: start: 20170704

REACTIONS (3)
  - Delirium [Recovered/Resolved]
  - Visual acuity reduced [Unknown]
  - Deafness [Unknown]

NARRATIVE: CASE EVENT DATE: 20170704
